FAERS Safety Report 17040124 (Version 1)
Quarter: 2019Q4

REPORT INFORMATION
  Report Type: Spontaneous
  Country: US (occurrence: US)
  Receive Date: 20191116
  Receipt Date: 20191116
  Transmission Date: 20200122
  Serious: No
  Sender: FDA-Public Use
  Company Number: US-TORRENT-00007811

PATIENT
  Sex: Female

DRUGS (1)
  1. LOSARTAN. [Suspect]
     Active Substance: LOSARTAN
     Indication: PRODUCT USED FOR UNKNOWN INDICATION
     Dosage: UNTIL SHE RECEIVED A PHONE CALL AT THE END OF FEBRUARY OR FIRST WEEK OF MARCH (UNSPECIFIED END DATE)
     Dates: start: 20181212

REACTIONS (1)
  - Abnormal behaviour [Unknown]
